FAERS Safety Report 25984422 (Version 1)
Quarter: 2025Q4

REPORT INFORMATION
  Report Type: Spontaneous
  Country: US (occurrence: None)
  Receive Date: 20251030
  Receipt Date: 20251030
  Transmission Date: 20260118
  Serious: No
  Sender: FDA-CTU
  Company Number: None

PATIENT
  Age: 4 Week
  Sex: Female
  Weight: 4.86 kg

DRUGS (1)
  1. BEYFORTUS [Suspect]
     Active Substance: NIRSEVIMAB-ALIP
     Dosage: OTHER FREQUENCY : FIRST DOSE;?
     Route: 030

REACTIONS (1)
  - Incorrect dose administered [None]

NARRATIVE: CASE EVENT DATE: 20251016
